FAERS Safety Report 17946561 (Version 1)
Quarter: 2020Q2

REPORT INFORMATION
  Report Type: Other
  Country: DE (occurrence: DE)
  Receive Date: 20200626
  Receipt Date: 20200626
  Transmission Date: 20200714
  Serious: No
  Sender: FDA-Public Use
  Company Number: DE-LUPIN PHARMACEUTICALS INC.-2020-01997

PATIENT
  Age: 45 Year
  Sex: Female
  Weight: 55 kg

DRUGS (2)
  1. ATORVASTATIN [Suspect]
     Active Substance: ATORVASTATIN
     Indication: LIPOPROTEIN (A) INCREASED
     Dosage: 20 MILLIGRAM, QD
     Route: 048
     Dates: start: 20131025, end: 20131031
  2. SIMVASTATIN. [Suspect]
     Active Substance: SIMVASTATIN
     Indication: LIPOPROTEIN (A) INCREASED
     Dosage: 80 MILLIGRAM, QD
     Route: 048
     Dates: start: 20130904, end: 20131106

REACTIONS (2)
  - Myalgia [Recovered/Resolved]
  - Disturbance in attention [Recovered/Resolved]

NARRATIVE: CASE EVENT DATE: 20130904
